FAERS Safety Report 15483015 (Version 1)
Quarter: 2018Q4

REPORT INFORMATION
  Report Type: Spontaneous
  Country: US (occurrence: US)
  Receive Date: 20181003
  Receipt Date: 20181003
  Transmission Date: 20190205
  Serious: Yes (Other)
  Sender: FDA-Public Use
  Company Number: None

PATIENT
  Age: 45 Year
  Sex: Female
  Weight: 57.15 kg

DRUGS (7)
  1. TRANSDERM SCOP [Suspect]
     Active Substance: SCOPOLAMINE
     Indication: MOTION SICKNESS
     Dosage: TRANSDERMAL; 8 PATCH(ES);OTHER FREQUENCY:CHANGE EVERY 72 HR?
     Route: 062
     Dates: start: 20180901, end: 20180915
  2. VALIUM 10 MG (1/2-1 TABLET AT BEDTIME AS NEEDED) [Concomitant]
  3. ENDOCET 10/325 (AS NEEDED FOR PAIN) [Concomitant]
  4. DHEA 10MG (ONCE DAILY) [Concomitant]
  5. FROVA 2.5 MG (AS NEEDED FOR MIGRAINES) [Concomitant]
  6. PROGESTERONE 200MG (ONCE DAILY) [Concomitant]
  7. BACLOFEN 10MG ( AS NEEDED FOR MUSCLE SPASMS) [Concomitant]

REACTIONS (13)
  - Abdominal pain upper [None]
  - Dysphonia [None]
  - Flatulence [None]
  - Weight decreased [None]
  - Loss of personal independence in daily activities [None]
  - Diarrhoea [None]
  - Decreased appetite [None]
  - Vision blurred [None]
  - Withdrawal syndrome [None]
  - Disorientation [None]
  - Balance disorder [None]
  - Dry throat [None]
  - Nausea [None]

NARRATIVE: CASE EVENT DATE: 20180910
